FAERS Safety Report 24667382 (Version 1)
Quarter: 2024Q4

REPORT INFORMATION
  Report Type: Spontaneous
  Country: US (occurrence: US)
  Receive Date: 20241126
  Receipt Date: 20241126
  Transmission Date: 20250115
  Serious: No
  Sender: MCGUFF PHARMACEUTICALS, INC.
  Company Number: US-McGuff Pharmaceuticals, Inc.-2166046

PATIENT

DRUGS (1)
  1. ASCOR [Suspect]
     Active Substance: ASCORBIC ACID

REACTIONS (1)
  - Infusion site pain [Unknown]
